FAERS Safety Report 6478726-8 (Version None)
Quarter: 2009Q4

REPORT INFORMATION
  Report Type: 
  Country: None (occurrence: None)
  Receive Date: 20091123
  Receipt Date: 20090812
  Transmission Date: 20100525
  Serious: No
  Sender: FDA-Public Use
  Company Number: 8050313

PATIENT
  Age: 30 Year
  Sex: Female
  Weight: 48.9 kg

DRUGS (3)
  1. CIMZIA [Suspect]
     Indication: CROHN'S DISEASE
     Dosage: 400 MG SC
     Route: 058
     Dates: start: 20090501, end: 20090808
  2. NEXIUM [Concomitant]
  3. SEMCON [Concomitant]

REACTIONS (4)
  - CHILLS [None]
  - COUGH [None]
  - MYALGIA [None]
  - PYREXIA [None]
